FAERS Safety Report 24105160 (Version 1)
Quarter: 2024Q3

REPORT INFORMATION
  Report Type: Spontaneous
  Country: CA (occurrence: CA)
  Receive Date: 20240717
  Receipt Date: 20240717
  Transmission Date: 20241017
  Serious: Yes (Hospitalization, Other)
  Sender: FRESENIUS KABI
  Company Number: CA-FreseniusKabi-FK202410941

PATIENT
  Age: 74 Year
  Sex: Female
  Weight: 94 kg

DRUGS (1)
  1. PIPERACILLIN SODIUM\TAZOBACTAM SODIUM [Suspect]
     Active Substance: PIPERACILLIN SODIUM\TAZOBACTAM SODIUM
     Indication: Product used for unknown indication
     Dosage: DOSAGE FORM: NOT SPECIFIED?ROUTE OF ADMIN: INTRAVENOUS (NOT OTHERWISE SPECIFIED)

REACTIONS (3)
  - Acute kidney injury [Recovering/Resolving]
  - Blood creatine increased [Recovering/Resolving]
  - Renal tubular necrosis [Recovering/Resolving]
